FAERS Safety Report 7334257-4 (Version None)
Quarter: 2011Q1

REPORT INFORMATION
  Report Type: 
  Country: None (occurrence: None)
  Receive Date: 20110307
  Receipt Date: 20110222
  Transmission Date: 20110831
  Serious: Yes (Hospitalization)
  Sender: FDA-Public Use
  Company Number: JP-JNJFOC-20110301515

PATIENT
  Sex: Male

DRUGS (9)
  1. AMBROXOL HYDROCHLORIDE [Concomitant]
     Indication: BRONCHITIS
     Route: 048
  2. CRAVIT [Suspect]
     Indication: ENTERITIS INFECTIOUS
     Route: 048
  3. PROPECIA [Concomitant]
     Indication: ANDROGENETIC ALOPECIA
     Route: 048
  4. PRANLUKAST [Concomitant]
     Indication: BRONCHITIS
     Route: 048
  5. CLARITHROMYCIN [Concomitant]
     Indication: BRONCHITIS
     Route: 048
  6. MIYA BM [Suspect]
     Indication: ENTERITIS INFECTIOUS
     Route: 048
  7. CALONAL [Suspect]
     Indication: ENTERITIS INFECTIOUS
     Route: 048
  8. ALLEGRA [Concomitant]
     Indication: RHINITIS ALLERGIC
     Route: 048
  9. DEXTROMETHORPHAN HYDROBROMIDE [Concomitant]
     Indication: BRONCHITIS
     Route: 048

REACTIONS (4)
  - FEELING HOT [None]
  - DEPRESSED LEVEL OF CONSCIOUSNESS [None]
  - ERYTHEMA [None]
  - URTICARIA [None]
